FAERS Safety Report 4717814-0 (Version None)
Quarter: 2005Q3

REPORT INFORMATION
  Report Type: 
  Country: None (occurrence: None)
  Receive Date: 20050715
  Receipt Date: 20040726
  Transmission Date: 20060218
  Serious: Yes (Death)
  Sender: FDA-Public Use
  Company Number: 2004-00271

PATIENT
  Sex: Male

DRUGS (1)
  1. INTEGRILIN [Suspect]
     Indication: ACUTE MYOCARDIAL INFARCTION
     Dosage: INTRAVENOUS
     Route: 042

REACTIONS (1)
  - HAEMORRHAGE INTRACRANIAL [None]
